FAERS Safety Report 12431663 (Version 1)
Quarter: 2016Q2

REPORT INFORMATION
  Report Type: Spontaneous
  Country: GB (occurrence: GB)
  Receive Date: 20160603
  Receipt Date: 20160603
  Transmission Date: 20160815
  Serious: Yes (Hospitalization)
  Sender: FDA-Public Use
  Company Number: GB-ACCORD-040990

PATIENT
  Age: 80 Year
  Sex: Female

DRUGS (7)
  1. AMITRIPTYLINE [Suspect]
     Active Substance: AMITRIPTYLINE
     Indication: INSOMNIA
     Dosage: AT NIGHT
     Route: 048
  2. CEFALEXIN [Concomitant]
     Active Substance: CEPHALEXIN
  3. NITROFURANTOIN/NITROFURANTOIN SODIUM [Concomitant]
  4. PROPRANOLOL [Concomitant]
     Active Substance: PROPRANOLOL\PROPRANOLOL HYDROCHLORIDE
  5. CALCICHEW D3 [Concomitant]
     Active Substance: CALCIUM\CHOLECALCIFEROL
  6. INDAPAMIDE/INDAPAMIDE HEMIHYDRATE [Suspect]
     Active Substance: INDAPAMIDE
     Indication: HYPERTENSION
     Dosage: EVERY MORNING
     Route: 048
     Dates: end: 20160511
  7. IBANDRONIC ACID [Concomitant]
     Active Substance: IBANDRONIC ACID

REACTIONS (3)
  - Hyponatraemia [Unknown]
  - Hypokalaemia [Recovering/Resolving]
  - Productive cough [Unknown]

NARRATIVE: CASE EVENT DATE: 20160425
